FAERS Safety Report 5128546-1 (Version None)
Quarter: 2006Q4

REPORT INFORMATION
  Report Type: 
  Country: None (occurrence: None)
  Receive Date: 20061011
  Receipt Date: 20060922
  Transmission Date: 20070319
  Serious: Yes (Death)
  Sender: FDA-Public Use
  Company Number: US194786

PATIENT
  Sex: 0

DRUGS (2)
  1. ENBREL [Suspect]
     Indication: RHEUMATOID ARTHRITIS
     Dosage: 25 MG, 2 IN 1 DAYS
  2. ABATACEPT (BRISTOL-MYERS SQUIBB) [Suspect]
     Indication: RHEUMATOID ARTHRITIS
     Dosage: 2 MG/KG, IV
     Route: 042
     Dates: start: 20010101, end: 20040101

REACTIONS (1)
  - DIFFUSE LARGE B-CELL LYMPHOMA [None]
